FAERS Safety Report 8635259 (Version 2)
Quarter: 2012Q4

REPORT INFORMATION
  Report Type: 
  Country: US (occurrence: None)
  Receive Date: 20120613
  Receipt Date: 20121123
  Transmission Date: 20130627
  Serious: Yes (Other)
  Sender: FDA-Public Use
  Company Number: AUR-APL-2012-02572

PATIENT
  Age: 52 Year
  Sex: Male

DRUGS (8)
  1. FLUCONAZOLE [Suspect]
     Indication: PRODUCT USED FOR UNKNOWN INDICATION
     Route: 048
  2. FLUCONAZOLE [Suspect]
     Indication: OROPHARYNGEAL CANDIDIASIS
     Route: 048
  3. RITONAVIR [Suspect]
     Indication: HIV INFECTION
  4. FLUTICASONE PROPIONATE [Suspect]
     Indication: BRONCHITIS CHRONIC
     Dosage: 500 mcg (250 mcg, 2 in 1 d), inhalation
     Route: 055
  5. FLUTICASONE PROPIONATE [Suspect]
     Indication: BRONCHITIS CHRONIC
     Dosage: 1000 mcg (500 mcg, 2 in 1 d), inhalation
     Route: 055
  6. FLUTICASONE PROPIONATE [Suspect]
     Indication: BRONCHITIS CHRONIC
     Route: 045
  7. ATAZANAVIR [Suspect]
     Indication: HIV INFECTION
  8. EFAVIRENZ [Suspect]
     Indication: HIV INFECTION

REACTIONS (6)
  - Candidiasis [None]
  - Fatigue [None]
  - Malaise [None]
  - Oedema peripheral [None]
  - Cushing^s syndrome [None]
  - Secondary adrenocortical insufficiency [None]
